FAERS Safety Report 14952381 (Version 2)
Quarter: 2018Q2

REPORT INFORMATION
  Report Type: Spontaneous
  Country: US (occurrence: US)
  Receive Date: 20180530
  Receipt Date: 20180530
  Transmission Date: 20180711
  Serious: No
  Sender: FDA-Public Use
  Company Number: US-PFIZER INC-2018214925

PATIENT
  Age: 77 Year
  Sex: Female
  Weight: 63.39 kg

DRUGS (3)
  1. LYRICA [Suspect]
     Active Substance: PREGABALIN
     Indication: CHEST PAIN
     Dosage: 225 MG, 2X/DAY (1 IN THE MORNING AND 2 AT NIGHT)
     Dates: start: 20170727
  2. LYRICA [Suspect]
     Active Substance: PREGABALIN
     Indication: CHEST DISCOMFORT
     Dosage: 50 MG, UNK
     Dates: end: 20170725
  3. LYRICA [Suspect]
     Active Substance: PREGABALIN
     Indication: ARTHRALGIA

REACTIONS (2)
  - Product use in unapproved indication [Unknown]
  - Diarrhoea [Not Recovered/Not Resolved]

NARRATIVE: CASE EVENT DATE: 201707
